FAERS Safety Report 5456845-2 (Version None)
Quarter: 2007Q3

REPORT INFORMATION
  Report Type: 
  Country: None (occurrence: None)
  Receive Date: 20070918
  Receipt Date: 20070906
  Transmission Date: 20080115
  Serious: Yes (Death, Hospitalization, Other)
  Sender: FDA-Public Use
  Company Number: US-PFIZER INC-2007009350

PATIENT
  Sex: Male

DRUGS (3)
  1. LYRICA [Suspect]
     Indication: LUMBAR RADICULOPATHY
  2. LYRICA [Suspect]
     Indication: NEUROPATHY
  3. PERCOCET [Concomitant]

REACTIONS (3)
  - DEEP VEIN THROMBOSIS [None]
  - DYSPNOEA [None]
  - PULMONARY EMBOLISM [None]
